FAERS Safety Report 10010669 (Version 2)
Quarter: 2014Q2

REPORT INFORMATION
  Report Type: Spontaneous
  Country: CH (occurrence: CH)
  Receive Date: 20140314
  Receipt Date: 20140416
  Transmission Date: 20141212
  Serious: Yes (Death)
  Sender: FDA-Public Use
  Company Number: CH-BAYER-2014-034343

PATIENT
  Sex: Female

DRUGS (7)
  1. BETAFERON [Suspect]
     Indication: MULTIPLE SCLEROSIS
     Dosage: 250 ?G, QOD
     Route: 058
     Dates: start: 19980101
  2. LISOPRIL [Concomitant]
     Dosage: 5 MG, QD
  3. ASPEGIC [ACETYLSALICYLATE LYSINE] [Concomitant]
     Dosage: PRN
  4. DETRUSITOL [Concomitant]
     Dosage: 4 MG, QD
  5. DAFALGAN [Concomitant]
     Dosage: PRN
  6. STILNOX [Concomitant]
     Dosage: 10 MG PRN
  7. PANTOPRAZOLE [Concomitant]
     Dosage: 40 MG PRN

REACTIONS (6)
  - Lung neoplasm malignant [Fatal]
  - Fatigue [None]
  - Asthenia [None]
  - Dyspnoea [None]
  - Chest pain [None]
  - Dyspnoea [None]
